FAERS Safety Report 14549465 (Version 1)
Quarter: 2018Q1

REPORT INFORMATION
  Report Type: Spontaneous
  Country: TW (occurrence: TW)
  Receive Date: 20180219
  Receipt Date: 20180219
  Transmission Date: 20180509
  Serious: Yes (Death, Hospitalization)
  Sender: FDA-Public Use
  Company Number: TW-GLENMARK PHARMACEUTICALS-2018GMK032085

PATIENT
  Age: 65 Year
  Sex: Male

DRUGS (6)
  1. ISONIAZID. [Concomitant]
     Active Substance: ISONIAZID
     Indication: LATENT TUBERCULOSIS
     Dosage: UNK
     Route: 065
  2. HYDROCORTISONE BUTYRATE. [Suspect]
     Active Substance: HYDROCORTISONE BUTYRATE
     Indication: HISTIOCYTOSIS HAEMATOPHAGIC
  3. FLUMARIN                           /00780601/ [Concomitant]
     Indication: PRODUCT USED FOR UNKNOWN INDICATION
     Dosage: 1 G, UNK, PER 8 HOURS
     Route: 042
  4. TOCILIZUMAB. [Concomitant]
     Active Substance: TOCILIZUMAB
     Indication: PRODUCT USED FOR UNKNOWN INDICATION
     Dosage: UNK
     Route: 065
  5. HYDROCORTISONE BUTYRATE. [Suspect]
     Active Substance: HYDROCORTISONE BUTYRATE
     Indication: HISTIOCYTOSIS HAEMATOPHAGIC
     Dosage: 200 MG, OD
     Route: 042
  6. PREDNISOLONE. [Concomitant]
     Active Substance: PREDNISOLONE
     Indication: PRODUCT USED FOR UNKNOWN INDICATION
     Dosage: 10 MG, OD
     Route: 048

REACTIONS (6)
  - Abdominal wall haematoma [Unknown]
  - Necrotising fasciitis [Fatal]
  - Cytomegalovirus viraemia [Fatal]
  - Bacterial infection [Fatal]
  - Abdominal wall abscess [Unknown]
  - Septic shock [Fatal]
